FAERS Safety Report 6667731-4 (Version None)
Quarter: 2010Q1

REPORT INFORMATION
  Report Type: 
  Country: None (occurrence: None)
  Receive Date: 20100331
  Receipt Date: 20100317
  Transmission Date: 20100710
  Serious: Yes (Hospitalization, Disabling)
  Sender: FDA-Public Use
  Company Number: 2010PV000009

PATIENT
  Age: 39 Year
  Sex: Female

DRUGS (7)
  1. CYTARABINE [Suspect]
     Indication: METASTASES TO MENINGES
     Dosage: 50 MG; 1X; INTH
     Route: 037
  2. HYDROCORTONE [Suspect]
     Indication: METASTASES TO MENINGES
     Dosage: 50 MG; 1X; INTH
     Route: 037
     Dates: start: 20091125, end: 20091125
  3. TAXOL [Concomitant]
  4. BEVACIZUMAB [Concomitant]
  5. TAXOTERE [Concomitant]
  6. DOXORUBICIN HCL [Concomitant]
  7. METHOTREXATE [Concomitant]

REACTIONS (2)
  - BLINDNESS [None]
  - DIPLOPIA [None]
